FAERS Safety Report 16718168 (Version 1)
Quarter: 2019Q3

REPORT INFORMATION
  Report Type: Report from Study
  Country: US (occurrence: US)
  Receive Date: 20190820
  Receipt Date: 20190820
  Transmission Date: 20191005
  Serious: Yes (Hospitalization)
  Sender: FDA-Public Use
  Company Number: US-AMGEN-USASL2019068312

PATIENT
  Age: 77 Year
  Sex: Female

DRUGS (1)
  1. REPATHA [Suspect]
     Active Substance: EVOLOCUMAB
     Indication: BLOOD CHOLESTEROL INCREASED
     Dosage: 140 MILLIGRAM, Q2WK
     Route: 065

REACTIONS (8)
  - Dysphonia [Unknown]
  - Arthralgia [Unknown]
  - Vein disorder [Unknown]
  - Pain in extremity [Unknown]
  - Abdominal pain upper [Unknown]
  - Mobility decreased [Unknown]
  - Pulmonary pain [Unknown]
  - Rhinorrhoea [Unknown]
